FAERS Safety Report 21977762 (Version 2)
Quarter: 2023Q1

REPORT INFORMATION
  Report Type: Spontaneous
  Country: GB (occurrence: GB)
  Receive Date: 20230210
  Receipt Date: 20230214
  Transmission Date: 20230417
  Serious: Yes (Other)
  Sender: FDA-Public Use
  Company Number: GB-009507513-2301GBR010947

PATIENT
  Age: 65 Year
  Sex: Male

DRUGS (6)
  1. CARBOPLATIN [Suspect]
     Active Substance: CARBOPLATIN
     Indication: Lung adenocarcinoma stage I
     Dosage: UNK
     Dates: start: 202101
  2. CARBOPLATIN [Suspect]
     Active Substance: CARBOPLATIN
     Dosage: UNK
     Dates: start: 201910
  3. PEMETREXED [Suspect]
     Active Substance: PEMETREXED
     Indication: Lung adenocarcinoma stage I
     Dosage: UNK
     Dates: start: 201910, end: 202003
  4. KEYTRUDA [Suspect]
     Active Substance: PEMBROLIZUMAB
     Indication: Lung adenocarcinoma stage I
     Dosage: UNK
     Dates: start: 201910, end: 202012
  5. BECLOMETHASONE [Concomitant]
     Active Substance: BECLOMETHASONE
     Dosage: INHALER
  6. ALBUTEROL [Concomitant]
     Active Substance: ALBUTEROL
     Dosage: INHALER

REACTIONS (7)
  - Neutropenic sepsis [Unknown]
  - Hepatitis [Unknown]
  - Nephritis [Unknown]
  - Neoplasm progression [Unknown]
  - COVID-19 [Unknown]
  - Gene mutation [Unknown]
  - K-ras gene mutation [Unknown]

NARRATIVE: CASE EVENT DATE: 20191101
